FAERS Safety Report 11110844 (Version 3)
Quarter: 2015Q3

REPORT INFORMATION
  Report Type: Report from Study
  Country: US (occurrence: US)
  Receive Date: 20150513
  Receipt Date: 20150812
  Transmission Date: 20151125
  Serious: Yes (Death, Hospitalization)
  Sender: FDA-Public Use
  Company Number: US-JNJFOC-20150508305

PATIENT
  Age: 70 Year
  Sex: Female
  Weight: 51 kg

DRUGS (11)
  1. FLONASE [Concomitant]
     Active Substance: FLUTICASONE PROPIONATE
     Dosage: 1 SPRAY EACH NOSTRIL
     Route: 045
  2. GARLIC. [Concomitant]
     Active Substance: GARLIC
     Route: 048
  3. NOVOLIN R [Concomitant]
     Active Substance: INSULIN HUMAN
     Dosage: 10 UNITS AM, 8 UNITS PM
  4. CLARITIN [Concomitant]
     Active Substance: LORATADINE
     Route: 048
  5. SYNTHROID [Concomitant]
     Active Substance: LEVOTHYROXINE SODIUM
     Dosage: QAM
     Route: 048
  6. IMBRUVICA [Suspect]
     Active Substance: IBRUTINIB
     Indication: CHRONIC LYMPHOCYTIC LEUKAEMIA
     Dosage: THREE CAPSULES
     Route: 048
     Dates: start: 201401, end: 2015
  7. FERROUS SULFATE [Concomitant]
     Active Substance: FERROUS SULFATE\FERROUS SULFATE, DRIED
     Route: 048
  8. NOVOLIN N [Concomitant]
     Active Substance: INSULIN HUMAN
     Dosage: 10 UNITS AM, 8 UNITS PM
     Route: 058
  9. BENADRYL [Concomitant]
     Active Substance: DIPHENHYDRAMINE HYDROCHLORIDE
     Indication: PRURITUS
     Dosage: 25-50 MG Q6H
     Route: 048
  10. PROVERA [Concomitant]
     Active Substance: MEDROXYPROGESTERONE ACETATE
     Route: 048
  11. IMMUNOGLOBULIN G HUMAN [Concomitant]
     Active Substance: HUMAN IMMUNOGLOBULIN G
     Indication: HYPOGAMMAGLOBULINAEMIA

REACTIONS (14)
  - Disease progression [Fatal]
  - Fatigue [Unknown]
  - Anaemia [Unknown]
  - Asthenia [Recovered/Resolved]
  - Haemoptysis [Recovered/Resolved]
  - Abasia [Unknown]
  - Hypersensitivity [Not Recovered/Not Resolved]
  - Epistaxis [Not Recovered/Not Resolved]
  - Oropharyngeal pain [Unknown]
  - Muscular weakness [Unknown]
  - Cough [Unknown]
  - Pyrexia [Recovered/Resolved]
  - Mental status changes [Unknown]
  - Myalgia [Not Recovered/Not Resolved]

NARRATIVE: CASE EVENT DATE: 201504
